FAERS Safety Report 25313757 (Version 2)
Quarter: 2025Q3

REPORT INFORMATION
  Report Type: Report from Study
  Country: US (occurrence: US)
  Receive Date: 20250514
  Receipt Date: 20250807
  Transmission Date: 20251020
  Serious: No
  Sender: DECIPHERA PHARMACEUTICALS
  Company Number: US-DECIPHERA PHARMACEUTICALS LLC-2025US000433

PATIENT
  Age: 46 Year
  Sex: Female

DRUGS (3)
  1. ROMVIMZA [Suspect]
     Active Substance: VIMSELTINIB
     Indication: Giant cell tumour of tendon sheath
     Dosage: 30 MILLIGRAM, TWICE WEEKLY
     Dates: start: 202504
  2. ROMVIMZA [Suspect]
     Active Substance: VIMSELTINIB
     Indication: Desmoid tumour
     Dosage: 30 MILLIGRAM, TWICE WEEKLY
     Dates: start: 20250516
  3. PROGESTERONE [Suspect]
     Active Substance: PROGESTERONE
     Indication: Intra-abdominal haemorrhage
     Dates: start: 2025, end: 2025

REACTIONS (3)
  - Liver function test increased [Unknown]
  - Heavy menstrual bleeding [Not Recovered/Not Resolved]
  - Rash [Unknown]

NARRATIVE: CASE EVENT DATE: 20250101
